FAERS Safety Report 17236988 (Version 1)
Quarter: 2020Q1

REPORT INFORMATION
  Report Type: Report from Study
  Country: RU (occurrence: RU)
  Receive Date: 20200106
  Receipt Date: 20200106
  Transmission Date: 20200409
  Serious: Yes (Other)
  Sender: FDA-Public Use
  Company Number: RU-EMD SERONO-9138275

PATIENT
  Age: 29 Year
  Sex: Female

DRUGS (3)
  1. PERGOVERIS [Suspect]
     Active Substance: FOLLITROPIN\LUTROPIN ALFA
     Indication: IN VITRO FERTILISATION
     Dosage: UNIT DOSE: 300 (UNIT UNSPECFIED)
     Dates: start: 20160714, end: 20160724
  2. GONAL-F [Suspect]
     Active Substance: FOLLITROPIN
     Dosage: UNIT DOSE: 600 (UNIT UNSPECFIIED) AND IT WAS THE MOST RECENT ADMINISTERED DOSE
     Dates: start: 20160729
  3. GONAL-F [Suspect]
     Active Substance: FOLLITROPIN
     Indication: IN VITRO FERTILISATION
     Dosage: UNIT DOSE: 150 (UNIT UNSPECIFIED)
     Dates: start: 20160720

REACTIONS (1)
  - Abortion [Recovered/Resolved]

NARRATIVE: CASE EVENT DATE: 201608
